FAERS Safety Report 17730579 (Version 2)
Quarter: 2020Q2

REPORT INFORMATION
  Report Type: Report from Study
  Country: CA (occurrence: CA)
  Receive Date: 20200430
  Receipt Date: 20200521
  Transmission Date: 20200714
  Serious: Yes (Hospitalization)
  Sender: FDA-Public Use
  Company Number: PHHY2016CA143166

PATIENT
  Age: 50 Year
  Sex: Male

DRUGS (3)
  1. METHOTREXATE. [Concomitant]
     Active Substance: METHOTREXATE
     Indication: PRODUCT USED FOR UNKNOWN INDICATION
     Dosage: UNK, QD
     Route: 048
  2. COSENTYX [Suspect]
     Active Substance: SECUKINUMAB
     Indication: PSORIASIS
     Dosage: 300 MG, QMO
     Route: 058
     Dates: start: 20161015
  3. INFLUENZA VIRUS VACC SEASONAL INN [Suspect]
     Active Substance: INFLUENZA VIRUS VACCINE
     Indication: IMMUNISATION
     Dosage: 1 DF
     Route: 065

REACTIONS (3)
  - Paraesthesia [Recovering/Resolving]
  - Hypoaesthesia [Recovering/Resolving]
  - Aortic stenosis [Recovering/Resolving]

NARRATIVE: CASE EVENT DATE: 20161015
